FAERS Safety Report 24956621 (Version 1)
Quarter: 2025Q1

REPORT INFORMATION
  Report Type: Report from Study
  Country: US (occurrence: US)
  Receive Date: 20250211
  Receipt Date: 20250211
  Transmission Date: 20250408
  Serious: Yes (Other)
  Sender: AMGEN
  Company Number: US-AMGEN-USASL2024257916

PATIENT
  Age: 68 Year
  Sex: Female
  Weight: 71.2 kg

DRUGS (22)
  1. PROLIA [Suspect]
     Active Substance: DENOSUMAB
     Indication: Osteoporosis postmenopausal
     Route: 058
  2. PROLIA [Suspect]
     Active Substance: DENOSUMAB
     Route: 058
     Dates: start: 20240702
  3. ENBREL [Suspect]
     Active Substance: ETANERCEPT
     Indication: Rheumatoid arthritis
     Dosage: 50 MILLIGRAM PER MILLILITRE, QWK (INJECT 1 ML)
     Route: 058
  4. ENBREL [Suspect]
     Active Substance: ETANERCEPT
     Dosage: 50 MILLIGRAM PER MILLILITRE, QWK (INJECT 1 ML)
     Route: 058
     Dates: start: 20241203
  5. PREDNISONE [Suspect]
     Active Substance: PREDNISONE
     Indication: Product used for unknown indication
     Dosage: 5 MILLIGRAM, TAKE 3 TABS ORALLY QD FOR 5 DAYS
     Route: 048
     Dates: start: 20241203
  6. PREDNISONE [Suspect]
     Active Substance: PREDNISONE
     Dosage: 5 MILLIGRAM, THEN 2 TABS QD FOR 5 DAYS
     Route: 048
  7. PREDNISONE [Suspect]
     Active Substance: PREDNISONE
     Dosage: 5 MILLIGRAM, THEN 1 TABS QD FOR 5 DAYS
     Route: 048
  8. CYCLOBENZAPRINE [Concomitant]
     Active Substance: CYCLOBENZAPRINE
     Indication: Muscle spasms
     Route: 048
  9. DICLOFENAC [Concomitant]
     Active Substance: DICLOFENAC
  10. DICYCLOMINE [Concomitant]
     Active Substance: DICYCLOMINE HYDROCHLORIDE
     Indication: Abdominal pain
     Route: 048
  11. FLONASE [Concomitant]
     Active Substance: FLUTICASONE PROPIONATE
  12. GLYCOPYRROLATE [Concomitant]
     Active Substance: GLYCOPYRROLATE
     Route: 048
  13. HYDROCODONE [Concomitant]
     Active Substance: HYDROCODONE
     Route: 048
  14. ACETAMINOPHEN [Concomitant]
     Active Substance: ACETAMINOPHEN
     Route: 048
  15. HYOSCYAMINE [Concomitant]
     Active Substance: HYOSCYAMINE
     Indication: Pain
     Route: 060
  16. METOPROLOL SUCCINATE [Concomitant]
     Active Substance: METOPROLOL SUCCINATE
     Route: 048
  17. MIRALAX [Concomitant]
     Active Substance: POLYETHYLENE GLYCOL 3350
     Dosage: 1/2 DOSE, QD
  18. VITAMINS [Concomitant]
     Active Substance: VITAMINS
     Dosage: 1, QD
  19. OMEGA 3 [Concomitant]
     Active Substance: CAPSAICIN
     Dosage: UNK UNK, QD
  20. ONDANSETRON [Concomitant]
     Active Substance: ONDANSETRON
     Route: 048
  21. PROMETHAZINE [Concomitant]
     Active Substance: PROMETHAZINE HYDROCHLORIDE
     Route: 048
  22. TRIAMCINOLONE ACETONIDE [Concomitant]
     Active Substance: TRIAMCINOLONE ACETONIDE
     Route: 061

REACTIONS (34)
  - Immunodeficiency [Unknown]
  - Major depression [Unknown]
  - Diverticulitis [Unknown]
  - Joint swelling [Unknown]
  - Ear infection [Unknown]
  - Neck pain [Unknown]
  - Supraventricular tachycardia [Unknown]
  - Hyperlipidaemia [Unknown]
  - Obstructive sleep apnoea syndrome [Unknown]
  - Essential hypertension [Unknown]
  - Rhinitis allergic [Unknown]
  - Eczema [Unknown]
  - Spinal osteoarthritis [Unknown]
  - Radiculopathy [Unknown]
  - Intervertebral disc disorder [Unknown]
  - Back pain [Unknown]
  - Osteoarthritis [Unknown]
  - Diverticulum intestinal [Unknown]
  - Arthralgia [Unknown]
  - Muscle spasms [Unknown]
  - Nausea [Unknown]
  - Gastrooesophageal reflux disease [Unknown]
  - Macrocytosis [Unknown]
  - Impaired fasting glucose [Unknown]
  - Hyperhidrosis [Unknown]
  - Fibromyalgia [Unknown]
  - Essential tremor [Unknown]
  - Fatigue [Unknown]
  - Ear pain [Unknown]
  - Lumbar radiculopathy [Unknown]
  - Skin warm [Unknown]
  - Dry skin [Unknown]
  - Osteoporosis postmenopausal [Unknown]
  - Erythema [Unknown]

NARRATIVE: CASE EVENT DATE: 20180101
